FAERS Safety Report 12080905 (Version 2)
Quarter: 2016Q2

REPORT INFORMATION
  Report Type: Spontaneous
  Country: US (occurrence: US)
  Receive Date: 20160216
  Receipt Date: 20160527
  Transmission Date: 20160815
  Serious: Yes (Other)
  Sender: FDA-Public Use
  Company Number: US-TEVA-634245USA

PATIENT
  Age: 51 Year
  Sex: Female

DRUGS (2)
  1. ZECUITY [Suspect]
     Active Substance: SUMATRIPTAN SUCCINATE
     Route: 062
     Dates: start: 20160130
  2. ZECUITY [Suspect]
     Active Substance: SUMATRIPTAN SUCCINATE
     Route: 062
     Dates: start: 20160206

REACTIONS (8)
  - Application site scar [Recovered/Resolved]
  - Application site irritation [Not Recovered/Not Resolved]
  - Product physical issue [Unknown]
  - Application site urticaria [Unknown]
  - Application site vesicles [Recovered/Resolved]
  - Application site warmth [Unknown]
  - Application site pruritus [Unknown]
  - Application site erythema [Recovered/Resolved]

NARRATIVE: CASE EVENT DATE: 201601
